FAERS Safety Report 12282588 (Version 1)
Quarter: 2016Q2

REPORT INFORMATION
  Report Type: Spontaneous
  Country: US (occurrence: US)
  Receive Date: 20160419
  Receipt Date: 20160419
  Transmission Date: 20160815
  Serious: Yes (Other)
  Sender: FDA-Public Use
  Company Number: ADR-2015-01543

PATIENT
  Age: 66 Year
  Sex: Male

DRUGS (4)
  1. BACLOFEN. [Suspect]
     Active Substance: BACLOFEN
     Dosage: 347.42MCG/DAY
     Route: 037
  2. SUFENTANIL [Suspect]
     Active Substance: SUFENTANIL
     Dosage: 1080.6MCG/DAY
     Route: 037
  3. BUPIVACAINE. [Suspect]
     Active Substance: BUPIVACAINE
     Dosage: 5.403MG/DAY
     Route: 037
  4. CLONIDINE. [Suspect]
     Active Substance: CLONIDINE
     Dosage: 496.01MCG/DAY
     Route: 037

REACTIONS (1)
  - Pain [Recovered/Resolved]
